FAERS Safety Report 9717467 (Version 1)
Quarter: 2013Q4

REPORT INFORMATION
  Report Type: Spontaneous
  Country: US (occurrence: US)
  Receive Date: 20131127
  Receipt Date: 20131127
  Transmission Date: 20140711
  Serious: No
  Sender: FDA-Public Use
  Company Number: US-GILEAD-2009-0019701

PATIENT
  Sex: Female
  Weight: 83.46 kg

DRUGS (10)
  1. LETAIRIS [Suspect]
     Indication: PULMONARY ARTERIAL HYPERTENSION
     Route: 048
     Dates: start: 20081224
  2. REVATIO [Concomitant]
  3. PRAVASTATIN [Concomitant]
  4. LASIX [Concomitant]
  5. SINGULAIR CHEW [Concomitant]
  6. ASPIRIN [Concomitant]
  7. NASACORT AQ [Concomitant]
  8. PRILOSEC [Concomitant]
  9. DAILY MULTIVITAMIN [Concomitant]
  10. CALTRATE 600 W/D [Concomitant]

REACTIONS (3)
  - Chills [Unknown]
  - Flushing [Unknown]
  - Nasal congestion [Unknown]
